FAERS Safety Report 6936662-4 (Version None)
Quarter: 2010Q3

REPORT INFORMATION
  Report Type: 
  Country: None (occurrence: None)
  Receive Date: 20100823
  Receipt Date: 20100816
  Transmission Date: 20110219
  Serious: Yes (Death, Other)
  Sender: FDA-Public Use
  Company Number: US-ROCHE-721956

PATIENT
  Sex: Male

DRUGS (4)
  1. MYCOPHENOLATE MOFETIL [Suspect]
     Route: 065
     Dates: start: 20091217, end: 20100304
  2. BELATACEPT [Suspect]
     Route: 042
     Dates: start: 20070104, end: 20100617
  3. PREDNISONE [Suspect]
     Route: 048
     Dates: start: 20090130, end: 20100802
  4. SIROLIMUS [Concomitant]
     Dates: start: 20100129, end: 20100802

REACTIONS (2)
  - DEATH [None]
  - METASTATIC SQUAMOUS CELL CARCINOMA [None]
